FAERS Safety Report 10197558 (Version 1)
Quarter: 2014Q2

REPORT INFORMATION
  Report Type: Spontaneous
  Country: US (occurrence: US)
  Receive Date: 20140527
  Receipt Date: 20140527
  Transmission Date: 20141212
  Serious: No
  Sender: FDA-Public Use
  Company Number: US-NOVEN-14US009024

PATIENT
  Sex: Female

DRUGS (4)
  1. MINIVELLE [Suspect]
     Indication: NIGHT SWEATS
     Dosage: 0.075 MG, UNK
     Route: 062
     Dates: start: 2013
  2. MINIVELLE [Suspect]
     Indication: HOT FLUSH
     Dosage: 0.05 MG, UNK
     Route: 062
     Dates: start: 2013
  3. MINIVELLE [Suspect]
     Dosage: 0.075 MG, UNK
     Route: 062
     Dates: start: 201301
  4. DAYQUIL [Concomitant]
     Indication: NASOPHARYNGITIS
     Dosage: UNK
     Route: 048
     Dates: start: 201402, end: 201402

REACTIONS (7)
  - Feeling abnormal [Not Recovered/Not Resolved]
  - Disturbance in attention [Not Recovered/Not Resolved]
  - Memory impairment [Not Recovered/Not Resolved]
  - Blood oestrogen decreased [Recovered/Resolved]
  - Drug effect decreased [Not Recovered/Not Resolved]
  - Nasopharyngitis [Recovered/Resolved]
  - Vaginal haemorrhage [Recovered/Resolved]
